FAERS Safety Report 8567854-9 (Version None)
Quarter: 2012Q3

REPORT INFORMATION
  Report Type: 
  Country: None (occurrence: None)
  Receive Date: 20120803
  Receipt Date: 20111104
  Transmission Date: 20120928
  Serious: No
  Sender: FDA-Public Use
  Company Number: US-ABBOTT-11P-163-0871536-00

PATIENT
  Sex: Female
  Weight: 99.88 kg

DRUGS (3)
  1. NIASPAN [Suspect]
     Dates: start: 20111001
  2. NIASPAN [Suspect]
     Indication: BLOOD CHOLESTEROL INCREASED
     Dates: start: 20090601, end: 20111001
  3. LISINOPRIL [Concomitant]
     Indication: HYPERTENSION

REACTIONS (1)
  - HEADACHE [None]
